FAERS Safety Report 9481434 (Version 1)
Quarter: 2013Q3

REPORT INFORMATION
  Report Type: Spontaneous
  Country: US (occurrence: US)
  Receive Date: 20130828
  Receipt Date: 20130828
  Transmission Date: 20140515
  Serious: Yes (Hospitalization)
  Sender: FDA-Public Use
  Company Number: US-AMGEN-KDL166037

PATIENT
  Age: 44 Year
  Sex: Male

DRUGS (2)
  1. ENBREL [Suspect]
     Indication: PSORIATIC ARTHROPATHY
     Dosage: 25 MG, 2 TIMES/WK
     Route: 058
     Dates: start: 20021217
  2. METHOTREXATE [Concomitant]
     Dosage: 2.5 MG, 3 TIMES/WK
     Dates: start: 200601

REACTIONS (3)
  - Localised infection [Unknown]
  - Psoriatic arthropathy [Unknown]
  - Condition aggravated [Unknown]
